FAERS Safety Report 4629388-3 (Version None)
Quarter: 2005Q2

REPORT INFORMATION
  Report Type: 
  Country: None (occurrence: None)
  Receive Date: 20050405
  Receipt Date: 20050303
  Transmission Date: 20051028
  Serious: Yes (Death)
  Sender: FDA-Public Use
  Company Number: 10472

PATIENT
  Age: 5 Year
  Sex: Male

DRUGS (8)
  1. METHOTREXATE [Suspect]
     Indication: BURKITT'S LYMPHOMA
     Dosage: 15 MG PER_CYCLE/2 G/M2 PER _CYCLE IT/IV
     Route: 038
  2. VINCRISTINE [Suspect]
     Indication: BURKITT'S LYMPHOMA STAGE II
     Dosage: 1 MG/M2 PER_CYCLE/2 MG/M2 PER_CYCLE, IV
     Route: 042
  3. CYCLOPHOSPHAMIDE [Suspect]
     Indication: BURKITT'S LYMPHOMA STAGE II
     Dosage: 300 MG/M2 PER_CYCLE/500 MG/M2 PER_CYCLE IV
     Route: 042
  4. PREDNISONE [Suspect]
     Indication: BURKITT'S LYMPHOMA STAGE II
     Dosage: 30 MG/M2 BID PO
     Route: 048
  5. HYDROCORTISONE [Suspect]
     Indication: BURKITT'S LYMPHOMA STAGE II
     Dosage: 15 MG PER_CYCLE IT
     Route: 038
  6. LEUCOVORIN CALCIUM [Concomitant]
  7. COTRIM [Concomitant]
  8. SODIUM BICARBONATE [Concomitant]

REACTIONS (3)
  - DIARRHOEA HAEMORRHAGIC [None]
  - MUCOSAL INFLAMMATION [None]
  - PYREXIA [None]
